FAERS Safety Report 22538659 (Version 3)
Quarter: 2023Q4

REPORT INFORMATION
  Report Type: Report from Study
  Country: US (occurrence: US)
  Receive Date: 20230609
  Receipt Date: 20231122
  Transmission Date: 20240110
  Serious: Yes (Other)
  Sender: FDA-Public Use
  Company Number: US-ABBVIE-4343051

PATIENT
  Sex: Female

DRUGS (1)
  1. SKYRIZI [Suspect]
     Active Substance: RISANKIZUMAB-RZAA
     Indication: Psoriasis
     Route: 058

REACTIONS (5)
  - Basal cell carcinoma [Unknown]
  - Therapeutic response shortened [Unknown]
  - Arthralgia [Unknown]
  - Skin ulcer [Not Recovered/Not Resolved]
  - Psoriasis [Recovering/Resolving]
